FAERS Safety Report 5023962-0 (Version None)
Quarter: 2006Q2

REPORT INFORMATION
  Report Type: 
  Country: None (occurrence: None)
  Receive Date: 20060607
  Receipt Date: 20060524
  Transmission Date: 20061013
  Serious: Yes (Hospitalization)
  Sender: FDA-Public Use
  Company Number: 2006US000304

PATIENT
  Age: 19 Year
  Sex: Male

DRUGS (9)
  1. PROGRAF [Suspect]
     Indication: PROPHYLAXIS AGAINST TRANSPLANT REJECTION
  2. XENAPAX (DACLIZUMAB) [Suspect]
     Indication: RENAL TRANSPLANT
     Dosage: SEE IMAGE
     Route: 042
     Dates: start: 20050329, end: 20050329
  3. XENAPAX (DACLIZUMAB) [Suspect]
     Indication: RENAL TRANSPLANT
     Dosage: SEE IMAGE
     Route: 042
     Dates: start: 20051001, end: 20051001
  4. NU-IRON (POLYSACCHARIDE-IRON COMPLEX) [Concomitant]
  5. SEPTRA [Concomitant]
  6. SINGULAIR (MONTELUEKAST) [Concomitant]
  7. NORVASC [Concomitant]
  8. PREVACID [Concomitant]
  9. ASPIRIN [Concomitant]

REACTIONS (4)
  - BACTERIAL PYELONEPHRITIS [None]
  - CULTURE URINE POSITIVE [None]
  - ESCHERICHIA INFECTION [None]
  - SERRATIA INFECTION [None]
